FAERS Safety Report 8788909 (Version 1)
Quarter: 2012Q4

REPORT INFORMATION
  Report Type: 
  Country: US (occurrence: US)
  Receive Date: 20120915
  Receipt Date: 20120915
  Transmission Date: 20130627
  Serious: No
  Sender: FDA-Public Use
  Company Number: US-009507513-1208USA005952

PATIENT

DRUGS (4)
  1. VICTRELIS [Suspect]
     Indication: HEPATITIS C
     Dosage: 800 mg, tid (Victrelis 200mg capsule)
     Route: 048
     Dates: start: 20120626
  2. LORAZEPAM [Concomitant]
     Dosage: 2 mg, UNK
  3. TUMS [Concomitant]
  4. ASPIRIN [Concomitant]
     Dosage: 81 mg, UNK

REACTIONS (1)
  - Nausea [Not Recovered/Not Resolved]
